FAERS Safety Report 5156689-5 (Version None)
Quarter: 2006Q4

REPORT INFORMATION
  Report Type: 
  Country: None (occurrence: None)
  Receive Date: 20061115
  Receipt Date: 20061103
  Transmission Date: 20070319
  Serious: Yes (Life-Threatening)
  Sender: FDA-Public Use
  Company Number: ES-2006-033686

PATIENT
  Age: 90 Year
  Sex: Female

DRUGS (1)
  1. ULTRAVIST (PHARMACY BULK) [Suspect]
     Indication: COMPUTERISED TOMOGRAM ABDOMEN
     Dosage: 50 ML, 1 DOSE
     Dates: start: 20061103, end: 20061103

REACTIONS (6)
  - CIRCULATORY COLLAPSE [None]
  - CYANOSIS [None]
  - EYELID OEDEMA [None]
  - HYPOTENSION [None]
  - MALAISE [None]
  - SNEEZING [None]
